FAERS Safety Report 22656110 (Version 1)
Quarter: 2023Q2

REPORT INFORMATION
  Report Type: Spontaneous
  Country: US (occurrence: US)
  Receive Date: 20230629
  Receipt Date: 20230629
  Transmission Date: 20230722
  Serious: Yes (Other)
  Sender: FDA-Public Use
  Company Number: US-FreseniusKabi-FK202309661

PATIENT
  Age: 71 Year
  Sex: Male

DRUGS (6)
  1. DAPTOMYCIN [Suspect]
     Active Substance: DAPTOMYCIN
     Indication: Staphylococcal infection
  2. ZOSYN [Concomitant]
     Active Substance: PIPERACILLIN SODIUM\TAZOBACTAM SODIUM
     Indication: Staphylococcal infection
  3. ATORVASTATIN [Concomitant]
     Active Substance: ATORVASTATIN
     Indication: Staphylococcal infection
  4. AMIODARONE [Concomitant]
     Active Substance: AMIODARONE
     Indication: Staphylococcal infection
  5. RIFAXIMIN [Concomitant]
     Active Substance: RIFAXIMIN
     Indication: Staphylococcal infection
  6. LACTULOSE [Concomitant]
     Active Substance: LACTULOSE
     Indication: Hepatic encephalopathy

REACTIONS (2)
  - Hepatotoxicity [Recovering/Resolving]
  - Hepatic encephalopathy [Recovering/Resolving]
